FAERS Safety Report 9115407 (Version 1)
Quarter: 2013Q1

REPORT INFORMATION
  Report Type: Spontaneous
  Country: US (occurrence: None)
  Receive Date: 20130128
  Receipt Date: 20130128
  Transmission Date: 20140127
  Serious: Yes (Other)
  Sender: FDA-Public Use
  Company Number: AUR-APL-2012-05506

PATIENT
  Age: 71 Year
  Sex: Male

DRUGS (1)
  1. METFORMIN (METFORMIN) [Suspect]
     Indication: HYPERGLYCAEMIA
     Dosage: UNKNOWN? - STOPPED

REACTIONS (3)
  - Pseudoporphyria [None]
  - Scar [None]
  - Skin fragility [None]
